FAERS Safety Report 5562896-X (Version None)
Quarter: 2007Q4

REPORT INFORMATION
  Report Type: 
  Country: None (occurrence: None)
  Receive Date: 20071217
  Receipt Date: 20071213
  Transmission Date: 20080405
  Serious: Yes (Life-Threatening, Hospitalization, Other)
  Sender: FDA-Public Use
  Company Number: US-ROXANE LABORATORIES, INC-2007-BP-17688BP

PATIENT
  Sex: Female
  Weight: 2 kg

DRUGS (5)
  1. VIRAMUNE [Suspect]
     Indication: VERTICAL INFECTION TRANSMISSION
     Route: 048
     Dates: start: 20070301, end: 20070307
  2. ZIDOVUDINE [Suspect]
     Indication: VERTICAL INFECTION TRANSMISSION
     Route: 048
     Dates: start: 20070301
  3. VITAMIN K [Concomitant]
     Dates: start: 20070301, end: 20070301
  4. SILVER NITRATE [Concomitant]
     Dates: start: 20070301, end: 20070301
  5. ZIDOVUDINE [Concomitant]
     Dates: start: 20070301, end: 20070301

REACTIONS (3)
  - ANAEMIA [None]
  - PLATELET COUNT INCREASED [None]
  - SEPSIS [None]
